FAERS Safety Report 15690035 (Version 1)
Quarter: 2018Q4

REPORT INFORMATION
  Report Type: Spontaneous
  Country: CO (occurrence: CO)
  Receive Date: 20181205
  Receipt Date: 20181205
  Transmission Date: 20190205
  Serious: Yes (Hospitalization)
  Sender: FDA-Public Use
  Company Number: CO-PFIZER INC-2018499546

PATIENT
  Age: 61 Year
  Sex: Female

DRUGS (1)
  1. XELJANZ [Suspect]
     Active Substance: TOFACITINIB CITRATE
     Indication: RHEUMATOID ARTHRITIS
     Dosage: 5 MG, UNKNOWN FREQUENCY
     Route: 048
     Dates: start: 20181120

REACTIONS (5)
  - Dry mouth [Unknown]
  - Skin exfoliation [Not Recovered/Not Resolved]
  - Somnolence [Unknown]
  - Balance disorder [Unknown]
  - Slow speech [Unknown]

NARRATIVE: CASE EVENT DATE: 201811
